FAERS Safety Report 23853058 (Version 1)
Quarter: 2024Q2

REPORT INFORMATION
  Report Type: Spontaneous
  Country: US (occurrence: US)
  Receive Date: 20240514
  Receipt Date: 20240514
  Transmission Date: 20240716
  Serious: No
  Sender: FDA-Public Use
  Company Number: US-SANDOZ-SDZ2024US047057

PATIENT
  Sex: Male

DRUGS (12)
  1. AZITHROMYCIN [Suspect]
     Active Substance: AZITHROMYCIN
     Indication: Cough
     Dosage: UNK
     Route: 065
  2. AZITHROMYCIN [Suspect]
     Active Substance: AZITHROMYCIN
     Indication: Productive cough
  3. AMIKACIN [Suspect]
     Active Substance: AMIKACIN
     Indication: Cough
     Route: 065
  4. AMIKACIN [Suspect]
     Active Substance: AMIKACIN
     Indication: Productive cough
  5. ETHAMBUTOL [Suspect]
     Active Substance: ETHAMBUTOL HYDROCHLORIDE
     Indication: Cough
     Route: 065
  6. ETHAMBUTOL [Suspect]
     Active Substance: ETHAMBUTOL HYDROCHLORIDE
     Indication: Productive cough
  7. LINEZOLID [Suspect]
     Active Substance: LINEZOLID
     Indication: Cough
     Dosage: UNK
     Route: 065
  8. LINEZOLID [Suspect]
     Active Substance: LINEZOLID
     Indication: Productive cough
  9. MOXIFLOXACIN [Suspect]
     Active Substance: MOXIFLOXACIN
     Indication: Cough
     Route: 065
  10. MOXIFLOXACIN [Suspect]
     Active Substance: MOXIFLOXACIN
     Indication: Productive cough
  11. RIFAMPIN [Suspect]
     Active Substance: RIFAMPIN
     Indication: Cough
     Dosage: UNK
     Route: 065
  12. RIFAMPIN [Suspect]
     Active Substance: RIFAMPIN
     Indication: Productive cough

REACTIONS (5)
  - Haemoptysis [Not Recovered/Not Resolved]
  - Productive cough [Not Recovered/Not Resolved]
  - Cough [Not Recovered/Not Resolved]
  - Sputum increased [Not Recovered/Not Resolved]
  - Weight decreased [Unknown]
